FAERS Safety Report 14581036 (Version 2)
Quarter: 2019Q1

REPORT INFORMATION
  Report Type: Spontaneous
  Country: US (occurrence: US)
  Receive Date: 20180228
  Receipt Date: 20190318
  Transmission Date: 20190417
  Serious: No
  Sender: FDA-Public Use
  Company Number: US-PFIZER INC-2018079482

PATIENT
  Age: 85 Year
  Sex: Female

DRUGS (1)
  1. IBRANCE [Suspect]
     Active Substance: PALBOCICLIB
     Dosage: 100 MG, UNK

REACTIONS (6)
  - Constipation [Unknown]
  - Fatigue [Unknown]
  - Radiation associated pain [Unknown]
  - Pain [Recovering/Resolving]
  - Blood iron decreased [Unknown]
  - Anaemia [Unknown]
